FAERS Safety Report 10671711 (Version 1)
Quarter: 2014Q4

REPORT INFORMATION
  Report Type: Spontaneous
  Country: CA (occurrence: CA)
  Receive Date: 20141223
  Receipt Date: 20141223
  Transmission Date: 20150529
  Serious: Yes (Other)
  Sender: FDA-Public Use
  Company Number: CA-PFIZER INC-2014347039

PATIENT
  Age: 69 Year
  Sex: Male

DRUGS (16)
  1. AMITRIPTYLINE [Concomitant]
     Active Substance: AMITRIPTYLINE
  2. PYRIDOSTIGMINE BROMIDE. [Concomitant]
     Active Substance: PYRIDOSTIGMINE BROMIDE
  3. GABAPENTIN. [Suspect]
     Active Substance: GABAPENTIN
     Dosage: 300 MG, 2X/DAY
  4. SULFASALAZINE. [Concomitant]
     Active Substance: SULFASALAZINE
  5. GABAPENTIN. [Suspect]
     Active Substance: GABAPENTIN
     Indication: ESSENTIAL TREMOR
     Dosage: 300 MG, 1X/DAY
  6. NEOSTIGMINE METILSULFATE [Concomitant]
  7. DIAZEPAM. [Concomitant]
     Active Substance: DIAZEPAM
  8. PREDNISONE. [Concomitant]
     Active Substance: PREDNISONE
  9. GABAPENTIN. [Suspect]
     Active Substance: GABAPENTIN
     Dosage: 600 MG, 3X/DAY
  10. GABAPENTIN. [Suspect]
     Active Substance: GABAPENTIN
     Dosage: 300 MG, 3X/DAY
  11. ATROPINE [Concomitant]
     Active Substance: ATROPINE
  12. AZATHIOPRINE. [Concomitant]
     Active Substance: AZATHIOPRINE
  13. CLONAZEPAM. [Concomitant]
     Active Substance: CLONAZEPAM
  14. PRIMIDONE. [Concomitant]
     Active Substance: PRIMIDONE
  15. ACTH [Concomitant]
     Active Substance: CORTICOTROPIN
  16. MYCOPHENOLATE MOFETIL. [Concomitant]
     Active Substance: MYCOPHENOLATE MOFETIL

REACTIONS (4)
  - Diplopia [Recovered/Resolved]
  - Eyelid ptosis [Recovered/Resolved]
  - Myasthenia gravis [Recovered/Resolved]
  - Product use issue [Recovered/Resolved]
